FAERS Safety Report 5956919-3 (Version None)
Quarter: 2008Q4

REPORT INFORMATION
  Report Type: 
  Country: None (occurrence: None)
  Receive Date: 20081118
  Receipt Date: 20081107
  Transmission Date: 20090506
  Serious: Yes (Death, Hospitalization, Other)
  Sender: FDA-Public Use
  Company Number: US-PFIZER INC-2008094313

PATIENT
  Sex: Female
  Weight: 36.3 kg

DRUGS (6)
  1. LIPITOR [Suspect]
     Indication: BLOOD CHOLESTEROL
     Route: 048
     Dates: start: 20060101, end: 20081105
  2. DIURETICS [Concomitant]
  3. CALCIUM [Concomitant]
  4. IRON [Concomitant]
  5. VITAMIN B1 TAB [Concomitant]
  6. PLAVIX [Concomitant]
     Dates: start: 19880101

REACTIONS (3)
  - CAROTID ARTERY OCCLUSION [None]
  - DEATH [None]
  - ILL-DEFINED DISORDER [None]
